FAERS Safety Report 18324373 (Version 3)
Quarter: 2020Q4

REPORT INFORMATION
  Report Type: Spontaneous
  Country: US (occurrence: US)
  Receive Date: 20200929
  Receipt Date: 20201103
  Transmission Date: 20210113
  Serious: No
  Sender: FDA-Public Use
  Company Number: US-GILEAD-2020-0496115

PATIENT
  Age: 30 Year
  Sex: Female

DRUGS (2)
  1. EPCLUSA [Suspect]
     Active Substance: SOFOSBUVIR\VELPATASVIR
     Indication: HEPATITIS C
     Dosage: 2 DOSAGE FORM, QD
     Route: 048
     Dates: start: 202010, end: 202010
  2. EPCLUSA [Suspect]
     Active Substance: SOFOSBUVIR\VELPATASVIR
     Dosage: 1 PO QD
     Route: 048
     Dates: start: 202008

REACTIONS (5)
  - Nausea [Unknown]
  - Pain [Not Recovered/Not Resolved]
  - Overdose [Recovered/Resolved]
  - Fatigue [Unknown]
  - Yellow skin [Not Recovered/Not Resolved]

NARRATIVE: CASE EVENT DATE: 20200920
